FAERS Safety Report 26172652 (Version 1)
Quarter: 2025Q4

REPORT INFORMATION
  Report Type: Spontaneous
  Country: CN (occurrence: CN)
  Receive Date: 20251218
  Receipt Date: 20251218
  Transmission Date: 20260117
  Serious: Yes (Other)
  Sender: SHENZHEN TECHDOW PHARMACEUTICAL
  Company Number: CN-adr44030518216-HPR2025000859

PATIENT
  Age: 86 Year
  Sex: Male
  Weight: 43 kg

DRUGS (6)
  1. ENOXAPARIN SODIUM [Suspect]
     Active Substance: ENOXAPARIN SODIUM
     Indication: Atrial fibrillation
     Dosage: 4000IU,QD
     Dates: start: 20250726, end: 20250804
  2. RIVAROXABAN [Suspect]
     Active Substance: RIVAROXABAN
     Indication: Atrial fibrillation
     Dosage: 15MG,QD
     Dates: start: 20250804, end: 20250805
  3. CEFOPERAZONE SODIUM\SULBACTAM SODIUM [Concomitant]
     Active Substance: CEFOPERAZONE SODIUM\SULBACTAM SODIUM
     Indication: Pneumonia
     Dosage: 2G,EVERY 8 HOURS
     Dates: start: 20250726, end: 20250812
  4. Moxifloxacin hydrochloride sodium chloride injection [Concomitant]
     Indication: Pneumonia
     Dosage: 0.4G,QD
     Dates: start: 20250728, end: 20250812
  5. DOXOFYLLINE [Concomitant]
     Active Substance: DOXOFYLLINE
     Indication: Pneumonia
     Dosage: 0.2G,QD
     Dates: start: 20250726, end: 20250805
  6. AMBROXOL HYDROCHLORIDE [Concomitant]
     Active Substance: AMBROXOL HYDROCHLORIDE
     Indication: Pneumonia
     Dosage: 30MG,QD
     Dates: start: 20250726, end: 20250825

REACTIONS (4)
  - Mucosal haemorrhage [Recovering/Resolving]
  - Coagulation time prolonged [Recovering/Resolving]
  - Vascular access site haemorrhage [Recovering/Resolving]
  - Post procedural haemorrhage [Recovering/Resolving]

NARRATIVE: CASE EVENT DATE: 20250804
